FAERS Safety Report 4795163-2 (Version None)
Quarter: 2005Q4

REPORT INFORMATION
  Report Type: 
  Country: None (occurrence: None)
  Receive Date: 20051006
  Receipt Date: 20051006
  Transmission Date: 20060501
  Serious: Yes (Death, Hospitalization, Disabling)
  Sender: FDA-Public Use
  Company Number: None

PATIENT
  Age: 88 Year
  Sex: Female
  Weight: 63.5036 kg

DRUGS (6)
  1. ZYPREXA [Suspect]
     Indication: HALLUCINATION
     Dosage: 1 TAB @ BEDTIME
     Dates: start: 20050815
  2. ZYPREXA [Suspect]
     Indication: URINARY TRACT INFECTION
     Dosage: 1 TAB @ BEDTIME
     Dates: start: 20050815
  3. CIPROFLOXACIN HCL [Suspect]
     Indication: URINARY TRACT INFECTION
     Dosage: 1 TAB TWICE DAY FOR 3 DAYS
     Dates: start: 20050816, end: 20050818
  4. THYROID TAB [Concomitant]
  5. LASIX [Concomitant]
  6. DIOVAN [Concomitant]

REACTIONS (6)
  - CARDIAC FAILURE [None]
  - COMA [None]
  - CONVULSION [None]
  - DYSSTASIA [None]
  - FOOT DEFORMITY [None]
  - TREMOR [None]
